FAERS Safety Report 10389699 (Version 4)
Quarter: 2014Q3

REPORT INFORMATION
  Report Type: Report from Study
  Country: JP (occurrence: JP)
  Receive Date: 20140818
  Receipt Date: 20140916
  Transmission Date: 20150326
  Serious: Yes (Hospitalization)
  Sender: FDA-Public Use
  Company Number: JP-ROCHE-1447708

PATIENT
  Age: 70 Year
  Sex: Male
  Weight: 74.2 kg

DRUGS (12)
  1. PLACEBO [Suspect]
     Active Substance: UNSPECIFIED INGREDIENT
     Indication: HER-2 POSITIVE GASTRIC CANCER
     Dosage: THE MOST RECENT DOSE WAS RECEIVED ON 23/JUL/2014.
     Route: 042
     Dates: start: 20140205, end: 20140723
  2. PURSENID [Concomitant]
     Indication: CONSTIPATION
     Route: 048
     Dates: start: 20140210, end: 20140722
  3. NOVAMIN (JAPAN) [Concomitant]
     Indication: NAUSEA
     Route: 048
     Dates: start: 20140215, end: 20140722
  4. TRASTUZUMAB [Suspect]
     Active Substance: TRASTUZUMAB
     Indication: HER-2 POSITIVE GASTRIC CANCER
     Dosage: LOADING DOSE, CYCLE 1 ONLY.
     Route: 042
     Dates: start: 20140205, end: 20140205
  5. CAPECITABINE [Suspect]
     Active Substance: CAPECITABINE
     Indication: HER-2 POSITIVE GASTRIC CANCER
     Route: 048
     Dates: start: 20140205, end: 20140806
  6. PARIET [Concomitant]
     Active Substance: RABEPRAZOLE SODIUM
     Indication: GASTRITIS
     Route: 048
     Dates: start: 20140813
  7. TRASTUZUMAB [Suspect]
     Active Substance: TRASTUZUMAB
     Dosage: START DATE OF MAINTENANCE DOSE ESTIMATED AS PER PROTOCOL AND FREQUENCY. THE MOST RECENT DOSE WAS REC
     Route: 042
     Dates: start: 20140226, end: 20140723
  8. BESOFTEN (HEPARINOIDS) [Concomitant]
     Indication: PALMAR-PLANTAR ERYTHRODYSAESTHESIA SYNDROME
     Route: 061
     Dates: start: 20140207
  9. BESOFTEN (HEPARINOIDS) [Concomitant]
     Indication: PARONYCHIA
     Route: 061
     Dates: start: 20140723
  10. PARIET [Concomitant]
     Active Substance: RABEPRAZOLE SODIUM
     Indication: GASTRITIS
     Route: 048
     Dates: start: 20140220, end: 20140809
  11. CISPLATIN. [Suspect]
     Active Substance: CISPLATIN
     Indication: HER-2 POSITIVE GASTRIC CANCER
     Dosage: MOST RECENT DOSE ON 21/MAY/2014
     Route: 042
     Dates: start: 20140205, end: 20140521
  12. MAGMITT [Concomitant]
     Active Substance: MAGNESIUM OXIDE
     Indication: CONSTIPATION
     Route: 048
     Dates: start: 20140206, end: 20140722

REACTIONS (1)
  - Upper gastrointestinal haemorrhage [Recovering/Resolving]

NARRATIVE: CASE EVENT DATE: 20140810
